FAERS Safety Report 17435811 (Version 1)
Quarter: 2020Q1

REPORT INFORMATION
  Report Type: Spontaneous
  Country: FR (occurrence: FR)
  Receive Date: 20200219
  Receipt Date: 20200219
  Transmission Date: 20200409
  Serious: Yes (Hospitalization)
  Sender: FDA-Public Use
  Company Number: FR-MYLANLABS-2020M1018289

PATIENT
  Age: 80 Year
  Sex: Male
  Weight: 77 kg

DRUGS (14)
  1. VERAPAMIL HYDROCHLOIRDE [Concomitant]
     Active Substance: VERAPAMIL HYDROCHLORIDE
     Dosage: UNK
  2. PERINDOPRIL [Concomitant]
     Active Substance: PERINDOPRIL
     Dosage: UNK
  3. KARDEGIC [Concomitant]
     Active Substance: ASPIRIN DL-LYSINE
     Dosage: UNK
  4. XGEVA [Concomitant]
     Active Substance: DENOSUMAB
     Dosage: UNK
  5. EUPRESSYL                          /00631802/ [Concomitant]
     Active Substance: URAPIDIL HYDROCHLORIDE
     Dosage: UNK
  6. TAHOR [Concomitant]
     Active Substance: ATORVASTATIN CALCIUM
     Dosage: UNK
  7. CARBOPLATIN. [Suspect]
     Active Substance: CARBOPLATIN
     Indication: SMALL CELL LUNG CANCER METASTATIC
     Dosage: 4 CURES
     Route: 041
     Dates: start: 20190710, end: 20191003
  8. ETOPOSIDE. [Suspect]
     Active Substance: ETOPOSIDE
     Indication: SMALL CELL LUNG CANCER METASTATIC
     Dosage: 4 CURES
     Route: 041
     Dates: start: 20190710, end: 20191003
  9. TECENTRIQ [Suspect]
     Active Substance: ATEZOLIZUMAB
     Indication: SMALL CELL LUNG CANCER METASTATIC
     Dosage: 4 CURES
     Route: 041
     Dates: start: 20190710, end: 20191003
  10. PANTOPRAZOLE [Concomitant]
     Active Substance: PANTOPRAZOLE
     Dosage: UNK
  11. INNOHEP [Concomitant]
     Active Substance: TINZAPARIN SODIUM
     Dosage: UNK
  12. IPRATROPIUM                        /00391402/ [Concomitant]
     Active Substance: IPRATROPIUM BROMIDE
     Dosage: UNK
  13. BINOCRIT [Concomitant]
     Active Substance: ERYTHROPOIETIN
     Dosage: UNK
  14. METFORMINE                         /00082701/ [Concomitant]
     Active Substance: METFORMIN HYDROCHLORIDE
     Dosage: UNK

REACTIONS (1)
  - Keratitis [Recovered/Resolved]

NARRATIVE: CASE EVENT DATE: 20191016
